FAERS Safety Report 18529026 (Version 2)
Quarter: 2020Q4

REPORT INFORMATION
  Report Type: Spontaneous
  Country: US (occurrence: US)
  Receive Date: 20201120
  Receipt Date: 20201228
  Transmission Date: 20210114
  Serious: Yes (Death)
  Sender: FDA-Public Use
  Company Number: US-PFIZER INC-2020141353

PATIENT
  Age: 60 Year
  Sex: Female
  Weight: 88.44 kg

DRUGS (1)
  1. NALBUPHINE HYDROCHLORIDE. [Suspect]
     Active Substance: NALBUPHINE HYDROCHLORIDE
     Indication: PAIN
     Dosage: 1 ML, 1X/DAY (10MG/ML 1ML DAILY)
     Dates: start: 2005

REACTIONS (1)
  - Death [Fatal]
